FAERS Safety Report 5656705-8 (Version None)
Quarter: 2008Q1

REPORT INFORMATION
  Report Type: 
  Country: None (occurrence: None)
  Receive Date: 20080310
  Receipt Date: 20080303
  Transmission Date: 20080703
  Serious: Yes (Death, Life-Threatening)
  Sender: FDA-Public Use
  Company Number: CH-WYE-G00726707

PATIENT
  Age: 37 Year
  Sex: Female

DRUGS (3)
  1. EFFEXOR [Suspect]
     Indication: DEPRESSION
     Dosage: 150 + 300 MG PER DAY
     Route: 048
     Dates: start: 20050101, end: 20061005
  2. SURMONTIL [Suspect]
     Route: 048
     Dates: end: 20061005
  3. SEROQUEL [Suspect]
     Route: 048
     Dates: end: 20061005

REACTIONS (2)
  - TACHYCARDIA [None]
  - VENTRICULAR FIBRILLATION [None]
